FAERS Safety Report 4735817-7 (Version None)
Quarter: 2005Q3

REPORT INFORMATION
  Report Type: 
  Country: None (occurrence: None)
  Receive Date: 20050805
  Receipt Date: 20041102
  Transmission Date: 20060218
  Serious: Yes (Other)
  Sender: FDA-Public Use
  Company Number: 2004UW23670

PATIENT
  Age: 13867 Day
  Sex: Female
  Weight: 144.5 kg

DRUGS (2)
  1. CRESTOR [Suspect]
     Indication: C-REACTIVE PROTEIN INCREASED
     Route: 048
     Dates: start: 20040401, end: 20041103
  2. EFFEXOR [Suspect]
     Indication: DEPRESSION
     Route: 048
     Dates: start: 20030201

REACTIONS (3)
  - ABORTION SPONTANEOUS [None]
  - DRUG EXPOSURE DURING PREGNANCY [None]
  - PREGNANCY [None]
